FAERS Safety Report 5848406-8 (Version None)
Quarter: 2008Q3

REPORT INFORMATION
  Report Type: 
  Country: None (occurrence: None)
  Receive Date: 20080815
  Receipt Date: 20080815
  Transmission Date: 20090109
  Serious: Yes (Other)
  Sender: FDA-Public Use
  Company Number: None

PATIENT
  Sex: Male
  Weight: 61.2356 kg

DRUGS (9)
  1. LEVAQUIN [Suspect]
     Indication: TONSILLITIS
     Dosage: 500MG 1X 10 DAYS
     Dates: start: 20080727, end: 20080806
  2. ADDERRAL XR [Concomitant]
  3. ADVAIR DISKUS 100/50 [Concomitant]
  4. SEASONIQUE [Concomitant]
  5. SINGULAIR [Concomitant]
  6. ONE-A DAY ENERGY [Concomitant]
  7. CRANBERRY SUPPLEMENT [Concomitant]
  8. GLUCOSAMINE [Concomitant]
  9. IRON SUPPLEMENT/VITAMIN [Concomitant]

REACTIONS (3)
  - NAUSEA [None]
  - VAGINAL DISCHARGE [None]
  - VOMITING [None]
